FAERS Safety Report 9471163 (Version 1)
Quarter: 2013Q3

REPORT INFORMATION
  Report Type: Spontaneous
  Country: US (occurrence: None)
  Receive Date: 20130816
  Receipt Date: 20130816
  Transmission Date: 20140515
  Serious: Yes (Other)
  Sender: FDA-Public Use
  Company Number: 2013AP007198

PATIENT
  Sex: 0

DRUGS (1)
  1. QUETIAPINE FUMARATE [Suspect]

REACTIONS (8)
  - Drug ineffective [None]
  - Schizoaffective disorder [None]
  - Disease recurrence [None]
  - Mania [None]
  - Depression [None]
  - Psychotic disorder [None]
  - Delusion [None]
  - Hallucination [None]
